FAERS Safety Report 5662737-6 (Version None)
Quarter: 2008Q1

REPORT INFORMATION
  Report Type: 
  Country: None (occurrence: None)
  Receive Date: 20080311
  Receipt Date: 20080311
  Transmission Date: 20080703
  Serious: Yes (Hospitalization)
  Sender: FDA-Public Use
  Company Number: None

PATIENT
  Age: 59 Year
  Sex: Male
  Weight: 60.4 kg

DRUGS (1)
  1. SUMATRIPTAN SUCCINATE [Suspect]
     Indication: HEADACHE
     Dosage: 6MG PRN IM
     Route: 030
     Dates: start: 20080215, end: 20080215

REACTIONS (3)
  - ANGINA PECTORIS [None]
  - HYPERHIDROSIS [None]
  - HYPERTENSION [None]
